FAERS Safety Report 21090507 (Version 4)
Quarter: 2025Q3

REPORT INFORMATION
  Report Type: Report from Study
  Country: AU (occurrence: AU)
  Receive Date: 20220715
  Receipt Date: 20250710
  Transmission Date: 20251020
  Serious: Yes (Death, Other)
  Sender: JAZZ
  Company Number: AU-GW PHARMA-2022-AU-023746

PATIENT
  Sex: Male

DRUGS (1)
  1. CANNABIDIOL [Suspect]
     Active Substance: CANNABIDIOL
     Indication: Lennox-Gastaut syndrome
     Route: 048

REACTIONS (5)
  - Death [Fatal]
  - Seizure [Unknown]
  - Pneumonia [Unknown]
  - Sepsis [Unknown]
  - Abscess limb [Unknown]
